FAERS Safety Report 7778191-4 (Version None)
Quarter: 2011Q3

REPORT INFORMATION
  Report Type: 
  Country: None (occurrence: None)
  Receive Date: 20110922
  Receipt Date: 20110907
  Transmission Date: 20111222
  Serious: Yes (Hospitalization)
  Sender: FDA-Public Use
  Company Number: GRT 2011-13919

PATIENT
  Sex: Female

DRUGS (3)
  1. PREGABALIN [Concomitant]
  2. AMITRIPTYLINE HCL [Concomitant]
  3. LIDODERM [Suspect]
     Indication: BACK PAIN
     Dosage: 1 PATCH A DAY

REACTIONS (1)
  - SYNCOPE [None]
